FAERS Safety Report 16709059 (Version 1)
Quarter: 2019Q3

REPORT INFORMATION
  Report Type: Spontaneous
  Country: DE (occurrence: DE)
  Receive Date: 20190816
  Receipt Date: 20190816
  Transmission Date: 20191004
  Serious: Yes (Hospitalization)
  Sender: FDA-Public Use
  Company Number: DE-TEVA-2019-DE-1093191

PATIENT
  Age: 55 Year
  Sex: Male
  Weight: 86 kg

DRUGS (6)
  1. ALLOPURINOL RATIOPHARM [Concomitant]
     Active Substance: ALLOPURINOL
     Indication: GOUT
     Dosage: 300 MG
     Route: 048
  2. DOXEPIN [Concomitant]
     Active Substance: DOXEPIN
  3. BISOPROLOL RATIOPHARM [Concomitant]
     Active Substance: BISOPROLOL
     Indication: ATRIAL FIBRILLATION
     Dosage: 5 MG
     Route: 048
  4. XARELTO [Concomitant]
     Active Substance: RIVAROXABAN
     Indication: ATRIAL FIBRILLATION
     Dosage: 20 MG
     Route: 048
  5. ATORVASTATIN RATIOPHARM [Suspect]
     Active Substance: ATORVASTATIN
     Indication: HYPERCHOLESTEROLAEMIA
     Dosage: 40 MILLIGRAM
     Route: 048
  6. RAMILICH [Concomitant]
     Active Substance: RAMIPRIL
     Indication: HYPERTENSION
     Dosage: 5 MG
     Route: 048

REACTIONS (1)
  - Panic attack [Recovered/Resolved]

NARRATIVE: CASE EVENT DATE: 20150220
